FAERS Safety Report 23632020 (Version 1)
Quarter: 2024Q1

REPORT INFORMATION
  Report Type: Spontaneous
  Country: GB (occurrence: GB)
  Receive Date: 20240314
  Receipt Date: 20240314
  Transmission Date: 20240410
  Serious: Yes (Other)
  Sender: FDA-Public Use
  Company Number: None

PATIENT

DRUGS (3)
  1. CLOPIDOGREL [Suspect]
     Active Substance: CLOPIDOGREL BISULFATE
     Indication: Product used for unknown indication
     Route: 065
  2. FINASTERIDE [Concomitant]
     Active Substance: FINASTERIDE
     Indication: Prostatomegaly
     Dosage: 5 MG FINASTERIDE DAILY WITH BREAKFAST
     Route: 065
  3. VITAMIN D3 [Concomitant]
     Active Substance: CHOLECALCIFEROL
     Indication: Product used for unknown indication
     Dosage: 1000 IU (25 MICROGRAMS) OF VITAMIN D3 (CHOLECALCIFEROL) DAILY WITH BREAKFAST
     Route: 065

REACTIONS (2)
  - Gastrooesophageal reflux disease [Recovered/Resolved]
  - Throat irritation [Recovered/Resolved]
